FAERS Safety Report 8562874-2 (Version None)
Quarter: 2012Q3

REPORT INFORMATION
  Report Type: 
  Country: None (occurrence: None)
  Receive Date: 20120802
  Receipt Date: 20120719
  Transmission Date: 20120928
  Serious: Yes (Other)
  Sender: FDA-Public Use
  Company Number: US-AMGEN-USASP2011014290

PATIENT
  Age: 47 Year
  Sex: Female
  Weight: 97.052 kg

DRUGS (1)
  1. ENBREL [Suspect]
     Indication: RHEUMATOID ARTHRITIS
     Dosage: 50 MG, QWK
     Route: 058
     Dates: start: 20090701

REACTIONS (5)
  - ANORECTAL DISCOMFORT [None]
  - COCCIDIOIDOMYCOSIS [None]
  - HERPES SIMPLEX [None]
  - OVARIAN CYST [None]
  - DIARRHOEA [None]
